FAERS Safety Report 15125376 (Version 2)
Quarter: 2018Q3

REPORT INFORMATION
  Report Type: Report from Study
  Country: None (occurrence: SK)
  Receive Date: 20180710
  Receipt Date: 20180726
  Transmission Date: 20181010
  Serious: Yes (Death, Hospitalization)
  Sender: FDA-Public Use
  Company Number: SK-ABBVIE-18K-260-2385718-00

PATIENT
  Sex: Female

DRUGS (1)
  1. DUODOPA [Suspect]
     Active Substance: CARBIDOPA\LEVODOPA
     Indication: PARKINSON^S DISEASE
     Route: 050

REACTIONS (7)
  - Parkinson^s disease [Unknown]
  - Pyrexia [Unknown]
  - Dysphagia [Unknown]
  - Death [Fatal]
  - Inflammatory marker increased [Unknown]
  - Immobile [Unknown]
  - Hospitalisation [Unknown]

NARRATIVE: CASE EVENT DATE: 20180612
